FAERS Safety Report 8855928 (Version 1)
Quarter: 2012Q4

REPORT INFORMATION
  Report Type: 
  Country: US (occurrence: US)
  Receive Date: 20121023
  Receipt Date: 20121023
  Transmission Date: 20130627
  Serious: No
  Sender: FDA-Public Use
  Company Number: US-AMGEN-USASP2012058931

PATIENT
  Age: 36 Year
  Sex: Female
  Weight: 68.03 kg

DRUGS (5)
  1. ENBREL [Suspect]
     Indication: ANKYLOSING SPONDYLITIS
     Dosage: 50 mg, qwk
     Route: 058
  2. LEVOTHYROXIN [Concomitant]
     Dosage: 100 MCG, TAB
     Route: 048
  3. ESTROVEN [Concomitant]
     Dosage: TAB
     Route: 048
  4. ENDOMETRIL [Concomitant]
     Dosage: 100 mg, UNK
     Route: 067
  5. MULTIVITAMIN                       /00097801/ [Concomitant]
     Dosage: TAB
     Route: 048

REACTIONS (1)
  - Upper respiratory tract infection [Unknown]
